FAERS Safety Report 18228124 (Version 1)
Quarter: 2020Q3

REPORT INFORMATION
  Report Type: Spontaneous
  Country: US (occurrence: US)
  Receive Date: 20200903
  Receipt Date: 20200903
  Transmission Date: 20201103
  Serious: Yes (Hospitalization)
  Sender: FDA-Public Use
  Company Number: US-PFIZER INC-2020340911

PATIENT
  Age: 84 Year
  Sex: Female

DRUGS (4)
  1. LYRICA [Suspect]
     Active Substance: PREGABALIN
     Dosage: UNK
  2. REVLIMID [Suspect]
     Active Substance: LENALIDOMIDE
     Dosage: UNK
  3. POMALYST [Suspect]
     Active Substance: POMALIDOMIDE
     Indication: PLASMA CELL MYELOMA
     Dosage: 1 MG, DAILY
     Route: 048
     Dates: start: 20190725
  4. POMALYST [Suspect]
     Active Substance: POMALIDOMIDE
     Dosage: 3 MG, DAILY (21/ 28 DAYS)
     Route: 048
     Dates: start: 202001

REACTIONS (4)
  - Blood blister [Unknown]
  - Erythema [Unknown]
  - Peripheral swelling [Unknown]
  - Skin infection [Unknown]

NARRATIVE: CASE EVENT DATE: 202005
